FAERS Safety Report 4369077-6 (Version None)
Quarter: 2004Q2

REPORT INFORMATION
  Report Type: 
  Country: None (occurrence: None)
  Receive Date: 20040527
  Receipt Date: 20040517
  Transmission Date: 20050107
  Serious: Yes (Other)
  Sender: FDA-Public Use
  Company Number: 2004032727

PATIENT
  Age: 54 Year
  Sex: Female

DRUGS (7)
  1. PROCARDIA [Suspect]
     Indication: ILL-DEFINED DISORDER
     Dosage: 20 MG, ORAL
     Route: 048
     Dates: start: 19870101
  2. CYCLOSPORINE [Suspect]
     Indication: IMMUNOSUPPRESSION
     Dosage: 400 MG, ORAL
     Route: 048
     Dates: start: 19870101, end: 19980201
  3. LABETALOL HYDROCHLORIDE [Concomitant]
  4. AZATHIOPRINE [Concomitant]
  5. PREDNISONE TAB [Concomitant]
  6. FUROSEMIDE [Concomitant]
  7. MINOXIDIL [Concomitant]

REACTIONS (13)
  - DENTAL PLAQUE [None]
  - DIALYSIS [None]
  - ERYTHEMA [None]
  - GINGIVAL BLEEDING [None]
  - GINGIVAL DISORDER [None]
  - GINGIVAL HYPERTROPHY [None]
  - HYPERTROPHY OF TONGUE PAPILLAE [None]
  - KIDNEY TRANSPLANT REJECTION [None]
  - ORAL CANDIDIASIS [None]
  - ORAL SOFT TISSUE DISORDER [None]
  - PAPILLOMA VIRAL INFECTION [None]
  - STOMATITIS [None]
  - TREATMENT NONCOMPLIANCE [None]
